FAERS Safety Report 8508922-7 (Version None)
Quarter: 2012Q3

REPORT INFORMATION
  Report Type: 
  Country: None (occurrence: None)
  Receive Date: 20120713
  Receipt Date: 20120702
  Transmission Date: 20120928
  Serious: No
  Sender: FDA-Public Use
  Company Number: US-009507513-1207USA000849

PATIENT

DRUGS (11)
  1. MILK THISTLE [Concomitant]
  2. ORTHO TRI-CYCLEN [Concomitant]
  3. VICTRELIS [Suspect]
     Dosage: 800 MG, TID
     Route: 048
  4. REBETOL [Suspect]
  5. MACROBID [Concomitant]
  6. ASCORBIC ACID [Concomitant]
  7. ASPIRIN [Concomitant]
  8. VITAMIN D (UNSPECIFIED) [Concomitant]
     Dosage: UNK
  9. VITAMIN B-12 [Concomitant]
  10. PEG-INTRON [Suspect]
     Dosage: UNK
  11. ALEVE [Concomitant]

REACTIONS (1)
  - MENSTRUATION IRREGULAR [None]
